FAERS Safety Report 23503151 (Version 1)
Quarter: 2024Q1

REPORT INFORMATION
  Report Type: Spontaneous
  Country: ES (occurrence: ES)
  Receive Date: 20240208
  Receipt Date: 20240208
  Transmission Date: 20240409
  Serious: Yes (Other)
  Sender: FDA-Public Use
  Company Number: None

PATIENT
  Age: 92 Year
  Sex: Male

DRUGS (3)
  1. HYDROXYCHLOROQUINE SULFATE [Suspect]
     Active Substance: HYDROXYCHLOROQUINE SULFATE
     Indication: Polymyalgia rheumatica
     Route: 048
     Dates: start: 20230123, end: 20231130
  2. IDEOS FORTE [Concomitant]
     Indication: Osteoporosis
     Dosage: 500 MG/1000 IU, 30 TABLETS
     Route: 048
     Dates: start: 2020
  3. LORAZEPAM [Concomitant]
     Active Substance: LORAZEPAM
     Indication: Insomnia
     Dosage: 25 TABLETS
     Route: 048
     Dates: start: 2020

REACTIONS (1)
  - Toxic skin eruption [Recovered/Resolved]

NARRATIVE: CASE EVENT DATE: 20230202
